FAERS Safety Report 7931532-7 (Version None)
Quarter: 2011Q4

REPORT INFORMATION
  Report Type: 
  Country: None (occurrence: None)
  Receive Date: 20111121
  Receipt Date: 20111121
  Transmission Date: 20120403
  Serious: Yes (Hospitalization)
  Sender: FDA-Public Use
  Company Number: None

PATIENT
  Age: 74 Year
  Sex: Female
  Weight: 62.595 kg

DRUGS (1)
  1. PLAVIX [Suspect]
     Indication: THROMBOSIS PROPHYLAXIS
     Dosage: 1
     Route: 048
     Dates: start: 20101006, end: 20101106

REACTIONS (16)
  - DYSPNOEA [None]
  - EPISTAXIS [None]
  - MYOCARDIAL INFARCTION [None]
  - PALLOR [None]
  - BLOOD PRESSURE INCREASED [None]
  - HEADACHE [None]
  - GAIT DISTURBANCE [None]
  - VISUAL IMPAIRMENT [None]
  - MALAISE [None]
  - BALANCE DISORDER [None]
  - HEART RATE IRREGULAR [None]
  - COLD SWEAT [None]
  - HEART RATE INCREASED [None]
  - PAIN [None]
  - FATIGUE [None]
  - BURNING SENSATION [None]
